FAERS Safety Report 11047361 (Version 1)
Quarter: 2015Q2

REPORT INFORMATION
  Report Type: Report from Study
  Country: US (occurrence: US)
  Receive Date: 20150420
  Receipt Date: 20150420
  Transmission Date: 20150821
  Serious: Yes (Other)
  Sender: FDA-Public Use
  Company Number: PHEH2015US007426

PATIENT
  Sex: Male

DRUGS (2)
  1. MYFORTIC [Suspect]
     Active Substance: MYCOPHENOLATE SODIUM
     Indication: PRODUCT USED FOR UNKNOWN INDICATION
     Dosage: 360 MG, BID
     Route: 048
  2. RAPAMUNE [Suspect]
     Active Substance: SIROLIMUS
     Indication: PRODUCT USED FOR UNKNOWN INDICATION
     Dosage: 1 MG, QD
     Route: 048

REACTIONS (7)
  - Blood pressure increased [Recovering/Resolving]
  - Blood creatine increased [Unknown]
  - Renal vasculitis [Unknown]
  - Sinus disorder [Unknown]
  - Kidney fibrosis [Unknown]
  - Renal impairment [Unknown]
  - Hypoxia [Unknown]
